FAERS Safety Report 20304538 (Version 1)
Quarter: 2022Q1

REPORT INFORMATION
  Report Type: Spontaneous
  Country: US (occurrence: None)
  Receive Date: 20220106
  Receipt Date: 20220106
  Transmission Date: 20220423
  Serious: Yes (Hospitalization)
  Sender: FDA-Public Use
  Company Number: None

PATIENT
  Age: 70 Year
  Sex: Male
  Weight: 82.92 kg

DRUGS (3)
  1. ACALABRUTINIB [Suspect]
     Active Substance: ACALABRUTINIB
     Dates: end: 20211215
  2. BENDAMUSTINE HYDROCHLORIDE [Suspect]
     Active Substance: BENDAMUSTINE HYDROCHLORIDE
     Dates: end: 20211210
  3. RITUXIMAB [Suspect]
     Active Substance: RITUXIMAB
     Dates: end: 20211209

REACTIONS (4)
  - SARS-CoV-2 test positive [None]
  - Hypotension [None]
  - Asthenia [None]
  - Hypoxia [None]

NARRATIVE: CASE EVENT DATE: 20211209
